FAERS Safety Report 20709809 (Version 1)
Quarter: 2022Q2

REPORT INFORMATION
  Report Type: Spontaneous
  Country: GB (occurrence: GB)
  Receive Date: 20220414
  Receipt Date: 20220414
  Transmission Date: 20220721
  Serious: Yes (Other)
  Sender: FDA-Public Use
  Company Number: GB-MHRA-MED-202204011626282070-H7A5R

PATIENT
  Sex: Female

DRUGS (10)
  1. GENTAMICIN SULFATE [Suspect]
     Active Substance: GENTAMICIN SULFATE
     Dosage: UNK
  2. DEXAMETHASONE SODIUM PHOSPHATE [Suspect]
     Active Substance: DEXAMETHASONE SODIUM PHOSPHATE
     Dosage: UNK
  3. TRANEXAMIC ACID [Suspect]
     Active Substance: TRANEXAMIC ACID
     Dosage: UNK
  4. MIDAZOLAM [Suspect]
     Active Substance: MIDAZOLAM
     Dosage: UNK
  5. ONDANSETRON HYDROCHLORIDE [Suspect]
     Active Substance: ONDANSETRON HYDROCHLORIDE
     Dosage: UNK
  6. TEICOPLANIN [Suspect]
     Active Substance: TEICOPLANIN
     Indication: Adverse drug reaction
     Dosage: 800MG STAT DOSE
     Dates: start: 20220322
  7. AMLODIPINE [Concomitant]
     Active Substance: AMLODIPINE BESYLATE
     Dosage: UNK
  8. DOCUSATE [Concomitant]
     Active Substance: DOCUSATE
  9. FLUTICASONE [Concomitant]
     Active Substance: FLUTICASONE
     Dosage: UNK
  10. OMEPRAZOLE [Concomitant]
     Active Substance: OMEPRAZOLE
     Dosage: UNK

REACTIONS (5)
  - Vomiting [Recovered/Resolved]
  - Diarrhoea [Recovered/Resolved]
  - Rash [Recovered/Resolved]
  - Hypotension [Recovered/Resolved]
  - Allergy test [Unknown]

NARRATIVE: CASE EVENT DATE: 20220322
